FAERS Safety Report 15891145 (Version 1)
Quarter: 2019Q1

REPORT INFORMATION
  Report Type: Report from Study
  Country: GB (occurrence: GB)
  Receive Date: 20190130
  Receipt Date: 20190130
  Transmission Date: 20190417
  Serious: Yes (Hospitalization)
  Sender: FDA-Public Use
  Company Number: GB-MYLANLABS-2019M1007813

PATIENT
  Sex: Male
  Weight: 81 kg

DRUGS (7)
  1. MEFENAMIC ACID. [Concomitant]
     Active Substance: MEFENAMIC ACID
     Indication: PRODUCT USED FOR UNKNOWN INDICATION
     Dosage: UNK
     Dates: start: 20151101
  2. BETNOVATE [Concomitant]
     Active Substance: BETAMETHASONE
     Indication: PRODUCT USED FOR UNKNOWN INDICATION
     Dosage: UNK
     Dates: start: 20161219
  3. SOLPADOL                           /00116401/ [Concomitant]
     Active Substance: ACETAMINOPHEN\CODEINE PHOSPHATE
     Indication: PRODUCT USED FOR UNKNOWN INDICATION
     Dosage: UNK
     Dates: start: 20170325
  4. TRAMADOL. [Suspect]
     Active Substance: TRAMADOL
     Indication: PRODUCT USED FOR UNKNOWN INDICATION
     Dosage: UNK
     Route: 065
     Dates: start: 20170201, end: 20170325
  5. HUMIRA [Suspect]
     Active Substance: ADALIMUMAB
     Indication: PSORIASIS
     Dosage: 40 MILLIGRAM, BIWEEKLY
     Route: 058
     Dates: start: 20150529, end: 20150701
  6. HUMIRA [Suspect]
     Active Substance: ADALIMUMAB
     Dosage: 40 MILLIGRAM, QD
     Route: 058
     Dates: start: 20150914, end: 20170323
  7. EUMOVATE [Concomitant]
     Active Substance: CLOBETASONE BUTYRATE
     Indication: PRODUCT USED FOR UNKNOWN INDICATION
     Dosage: UNK
     Dates: end: 20161216

REACTIONS (4)
  - Accidental overdose [Recovered/Resolved]
  - Seizure [Recovered/Resolved]
  - Non-alcoholic fatty liver [Unknown]
  - Splenomegaly [Unknown]

NARRATIVE: CASE EVENT DATE: 2015
